FAERS Safety Report 4340537-7 (Version None)
Quarter: 2004Q2

REPORT INFORMATION
  Report Type: 
  Country: None (occurrence: None)
  Receive Date: 20040414
  Receipt Date: 20040331
  Transmission Date: 20050107
  Serious: Yes (Hospitalization)
  Sender: FDA-Public Use
  Company Number: RENA-10959

PATIENT
  Age: 57 Year
  Sex: Male

DRUGS (9)
  1. RENAGEL [Suspect]
     Indication: HYPERPHOSPHATAEMIA
     Dosage: 2.4 G DAILY PO
     Route: 048
     Dates: start: 20030501
  2. METOPROLOL SUCCINATE [Suspect]
  3. PHOS-EX [Concomitant]
  4. EINSALPHA [Concomitant]
  5. VIGANTOLETTEN [Concomitant]
  6. NEURONTIN [Suspect]
     Dosage: 300 MG QD
  7. RESTEX [Concomitant]
  8. ROHYPNOL [Concomitant]
  9. MARCUMAR [Concomitant]

REACTIONS (1)
  - SCLERODERMA [None]
